FAERS Safety Report 14635574 (Version 2)
Quarter: 2018Q2

REPORT INFORMATION
  Report Type: Spontaneous
  Country: JP (occurrence: JP)
  Receive Date: 20180314
  Receipt Date: 20180410
  Transmission Date: 20180711
  Serious: Yes (Other)
  Sender: FDA-Public Use
  Company Number: JP-PFIZER INC-2018099262

PATIENT
  Age: 66 Year
  Sex: Female
  Weight: 46 kg

DRUGS (7)
  1. FUROSEMIDE. [Concomitant]
     Active Substance: FUROSEMIDE
     Dosage: 5 ML, 1X/DAY
     Route: 042
     Dates: start: 20180228, end: 20180307
  2. TULOBUTEROL [Concomitant]
     Active Substance: TULOBUTEROL
     Dosage: ONE SHEET, 1X/DAY
     Route: 062
     Dates: start: 20180228, end: 20180315
  3. CEFTRIAXONE SODIUM PFIZER [Suspect]
     Active Substance: CEFTRIAXONE SODIUM
     Dosage: 2 MG, 1X/DAY
     Route: 042
     Dates: start: 20180227, end: 20180305
  4. DEXART [Concomitant]
     Active Substance: DEXAMETHASONE SODIUM PHOSPHATE
     Dosage: 6.6 MG, 2X/DAY
     Route: 042
     Dates: start: 20180228, end: 20180309
  5. GASTER [Concomitant]
     Active Substance: FAMOTIDINE
     Dosage: 1 AMPULE, 1X/DAY
     Route: 042
     Dates: start: 20180301, end: 20180309
  6. HEPARIN SODIUM. [Concomitant]
     Active Substance: HEPARIN SODIUM
     Dosage: 10 ML, DAILY
     Route: 042
     Dates: start: 20180228, end: 20180307
  7. DIAMOX SEQUELS [Concomitant]
     Active Substance: ACETAZOLAMIDE
     Dosage: UNK
     Dates: start: 20180301

REACTIONS (1)
  - Encephalopathy [Recovering/Resolving]

NARRATIVE: CASE EVENT DATE: 201803
